FAERS Safety Report 7004169-4 (Version None)
Quarter: 2010Q3

REPORT INFORMATION
  Report Type: 
  Country: None (occurrence: None)
  Receive Date: 20100920
  Receipt Date: 20100219
  Transmission Date: 20110219
  Serious: Yes (Other)
  Sender: FDA-Public Use
  Company Number: US-WYE-H13802910

PATIENT
  Sex: Male
  Weight: 68.1 kg

DRUGS (1)
  1. TORISEL [Suspect]
     Dosage: RECEIVED 2 DOSES

REACTIONS (3)
  - BACK PAIN [None]
  - BLOOD PRESSURE INCREASED [None]
  - HYPERSENSITIVITY [None]
